FAERS Safety Report 25281778 (Version 2)
Quarter: 2025Q2

REPORT INFORMATION
  Report Type: Spontaneous
  Country: US (occurrence: US)
  Receive Date: 20250508
  Receipt Date: 20250618
  Transmission Date: 20250717
  Serious: No
  Sender: ROCHE
  Company Number: US-ROCHE-10000272526

PATIENT
  Sex: Female

DRUGS (3)
  1. ALECENSA [Suspect]
     Active Substance: ALECTINIB HYDROCHLORIDE
     Indication: Lung neoplasm malignant
     Route: 048
     Dates: start: 202502
  2. SIMVASTATIN [Concomitant]
     Active Substance: SIMVASTATIN
  3. LORBRENA [Concomitant]
     Active Substance: LORLATINIB

REACTIONS (5)
  - Myalgia [Unknown]
  - Gait disturbance [Unknown]
  - Ill-defined disorder [Unknown]
  - Asthenia [Unknown]
  - Arthralgia [Unknown]
